FAERS Safety Report 6301616-8 (Version None)
Quarter: 2009Q3

REPORT INFORMATION
  Report Type: 
  Country: None (occurrence: None)
  Receive Date: 20090807
  Receipt Date: 20090730
  Transmission Date: 20100115
  Serious: Yes (Other)
  Sender: FDA-Public Use
  Company Number: ES-NOVOPROD-290043

PATIENT
  Age: 86 Year
  Sex: Female

DRUGS (4)
  1. NOVONORM [Suspect]
     Indication: TYPE 2 DIABETES MELLITUS
     Dosage: 3 MG, QD
     Route: 048
     Dates: start: 20070101
  2. LANTUS [Concomitant]
     Indication: TYPE 2 DIABETES MELLITUS
     Route: 058
     Dates: start: 20070101
  3. IBANDRONIC ACID [Concomitant]
     Indication: OSTEOPENIA
     Dosage: 150 MG, MONTHLY
     Route: 048
     Dates: start: 20070501
  4. ASPIRIN [Concomitant]
     Indication: DRUG USE FOR UNKNOWN INDICATION
     Dosage: 100 MG, QD
     Route: 048
     Dates: start: 20060101, end: 20081204

REACTIONS (1)
  - ISCHAEMIC STROKE [None]
